FAERS Safety Report 9292662 (Version 1)
Quarter: 2013Q2

REPORT INFORMATION
  Report Type: Spontaneous
  Country: FR (occurrence: FR)
  Receive Date: 20130516
  Receipt Date: 20130516
  Transmission Date: 20140414
  Serious: Yes (Hospitalization, Disabling, Other)
  Sender: FDA-Public Use
  Company Number: FR-ELI_LILLY_AND_COMPANY-FR201303006420

PATIENT
  Age: 45 Year
  Sex: Male

DRUGS (1)
  1. CIALIS [Suspect]
     Indication: ERECTILE DYSFUNCTION
     Dosage: 20 MG, QD
     Route: 048

REACTIONS (5)
  - Cerebrovascular accident [Recovered/Resolved with Sequelae]
  - Motor dysfunction [Not Recovered/Not Resolved]
  - Alexia [Not Recovered/Not Resolved]
  - Agraphia [Not Recovered/Not Resolved]
  - Visual field defect [Not Recovered/Not Resolved]
